FAERS Safety Report 8347794 (Version 6)
Quarter: 2013Q1

REPORT INFORMATION
  Report Type: Report from Study
  Country: JP (occurrence: JP)
  Receive Date: 20120122
  Receipt Date: 20130205
  Transmission Date: 20140127
  Serious: Yes (Other)
  Sender: FDA-Public Use
  Company Number: JP-VERTEX PHARMACEUTICALS INC.-AE-2012-001078

PATIENT
  Age: 57 Year
  Sex: Female

DRUGS (22)
  1. VX-950 (TELAPREVIR) [Suspect]
     Indication: CHRONIC HEPATITIS C
     Dosage: 2250 MG, QD
     Route: 048
     Dates: start: 20120111, end: 20120113
  2. VX-950 (TELAPREVIR) [Suspect]
     Dosage: 1500 MG, QD
     Route: 048
     Dates: start: 20120120, end: 20120318
  3. PEGINTRON [Suspect]
     Indication: CHRONIC HEPATITIS C
     Dosage: 1.5 ?G/KG, QW
     Route: 058
     Dates: start: 20120111, end: 20120213
  4. PEGINTRON [Suspect]
     Dosage: 1.3 ?G/KG, QW
     Route: 058
     Dates: start: 20120220, end: 20120319
  5. PEGINTRON [Suspect]
     Dosage: 1.3 ?G/KG, QW
     Route: 058
     Dates: start: 20120402, end: 20120625
  6. REBETOL [Suspect]
     Indication: CHRONIC HEPATITIS C
     Dosage: 800 MG, QD
     Route: 048
     Dates: start: 20120111, end: 20120205
  7. REBETOL [Suspect]
     Dosage: 400 MG, QD
     Route: 048
     Dates: start: 20120206, end: 20120212
  8. REBETOL [Suspect]
     Dosage: 200 MG, QD
     Route: 048
     Dates: start: 20120213, end: 20120318
  9. REBETOL [Suspect]
     Dosage: 200 MG, QD
     Route: 048
     Dates: start: 20120416, end: 20120521
  10. REBETOL [Suspect]
     Dosage: 400 MG, QD
     Route: 048
     Dates: start: 20120522, end: 20120527
  11. REBETOL [Suspect]
     Dosage: 200 MG, QD
     Route: 048
     Dates: start: 20120528, end: 20120625
  12. DEPAS [Concomitant]
     Dosage: 0.5 MG, QD
     Route: 048
  13. DEPAS [Concomitant]
     Dosage: 1.0 MG, QD
     Route: 048
  14. DEPAS [Concomitant]
     Dosage: 2 MG, QD
     Dates: start: 20120416
  15. FEROTYM [Concomitant]
     Dosage: 100 MG, QD
     Route: 048
  16. LIVALO [Concomitant]
     Dosage: 2 MG, QD
     Route: 048
     Dates: end: 20120113
  17. LIVALO [Concomitant]
     Dosage: 2 MG, QD
     Route: 048
     Dates: start: 20120206, end: 20120325
  18. LIVALO [Concomitant]
     Dosage: 2 MG, QD
     Route: 048
     Dates: start: 20120604
  19. EPADEL S [Concomitant]
     Dosage: 1800 MG, QD
     Route: 048
     Dates: end: 20120325
  20. CLARITIN REDITABS [Concomitant]
     Dosage: 10 MG, QD
     Route: 048
  21. ACINON [Concomitant]
     Dosage: 300 MG, QD
     Route: 048
     Dates: start: 20120227
  22. EPADEL [Concomitant]
     Dosage: 1800 MG, QD
     Route: 048
     Dates: start: 20120604

REACTIONS (7)
  - Renal disorder [Recovered/Resolved]
  - Renal disorder [Recovered/Resolved]
  - Anaemia [Not Recovered/Not Resolved]
  - Hyperuricaemia [Not Recovered/Not Resolved]
  - Hyperuricaemia [Recovered/Resolved]
  - Hyperuricaemia [Recovered/Resolved]
  - Platelet count decreased [Not Recovered/Not Resolved]
